FAERS Safety Report 24557136 (Version 1)
Quarter: 2024Q4

REPORT INFORMATION
  Report Type: Spontaneous
  Country: US (occurrence: US)
  Receive Date: 20241028
  Receipt Date: 20241028
  Transmission Date: 20250115
  Serious: No
  Sender: NOVO NORDISK
  Company Number: None

PATIENT
  Sex: Female

DRUGS (1)
  1. VAGIFEM [Suspect]
     Active Substance: ESTRADIOL
     Indication: Product used for unknown indication
     Dosage: UNK

REACTIONS (8)
  - Fatigue [Unknown]
  - Anxiety [Unknown]
  - Abdominal distension [Unknown]
  - Crying [Unknown]
  - Discomfort [Unknown]
  - Pelvic pain [Unknown]
  - Product substitution issue [Unknown]
  - Drug ineffective [Unknown]

NARRATIVE: CASE EVENT DATE: 20231121
